FAERS Safety Report 22181280 (Version 5)
Quarter: 2023Q4

REPORT INFORMATION
  Report Type: Spontaneous
  Country: US (occurrence: US)
  Receive Date: 20230406
  Receipt Date: 20231009
  Transmission Date: 20240109
  Serious: No
  Sender: FDA-Public Use
  Company Number: US-Ipsen Biopharmaceuticals, Inc.-2023-07666

PATIENT
  Age: 43 Year
  Sex: Male

DRUGS (1)
  1. SOMATULINE DEPOT [Suspect]
     Active Substance: LANREOTIDE ACETATE
     Indication: Acromegaly
     Dosage: 60MG/0.2ML
     Route: 058
     Dates: start: 20230303

REACTIONS (6)
  - Abdominal distension [Unknown]
  - Diarrhoea [Unknown]
  - Blood glucose increased [Unknown]
  - Influenza like illness [Unknown]
  - Abdominal pain [Unknown]
  - Abdominal pain upper [Unknown]
